FAERS Safety Report 5925817-3 (Version None)
Quarter: 2008Q4

REPORT INFORMATION
  Report Type: 
  Country: None (occurrence: None)
  Receive Date: 20081021
  Receipt Date: 20081009
  Transmission Date: 20090506
  Serious: Yes (Other)
  Sender: FDA-Public Use
  Company Number: AU-PFIZER INC-2008085282

PATIENT
  Sex: Male

DRUGS (7)
  1. XANAX [Suspect]
     Indication: MENTAL DISORDER
  2. VALIUM [Concomitant]
  3. EPILIM [Concomitant]
  4. ANTIDEPRESSANTS [Concomitant]
  5. ACETAMINOPHEN [Concomitant]
  6. EFFEXOR [Concomitant]
  7. ALL OTHER THERAPEUTIC PRODUCTS [Concomitant]

REACTIONS (7)
  - ABASIA [None]
  - AMNESIA [None]
  - BEDRIDDEN [None]
  - MALAISE [None]
  - NERVOUS SYSTEM DISORDER [None]
  - SPEECH DISORDER [None]
  - TREMOR [None]
